FAERS Safety Report 5926213-5 (Version None)
Quarter: 2008Q4

REPORT INFORMATION
  Report Type: 
  Country: None (occurrence: None)
  Receive Date: 20081017
  Receipt Date: 20081015
  Transmission Date: 20090506
  Serious: Yes (Other)
  Sender: FDA-Public Use
  Company Number: 1000001348

PATIENT
  Sex: Female

DRUGS (1)
  1. LEXAPRO [Suspect]
     Dates: start: 20080401

REACTIONS (1)
  - PATHOLOGICAL GAMBLING [None]
